FAERS Safety Report 25867185 (Version 1)
Quarter: 2025Q4

REPORT INFORMATION
  Report Type: Spontaneous
  Country: US (occurrence: US)
  Receive Date: 20251001
  Receipt Date: 20251001
  Transmission Date: 20260118
  Serious: No
  Sender: SANOFI AVENTIS
  Company Number: US-SA-2025SA291280

PATIENT
  Age: 64 Year
  Sex: Female

DRUGS (32)
  1. DUPIXENT [Suspect]
     Active Substance: DUPILUMAB
     Indication: Rhinitis allergic
     Dosage: 600 MG, 1X
     Route: 058
     Dates: start: 20250909, end: 20250909
  2. DILTIAZEM [Concomitant]
     Active Substance: DILTIAZEM
  3. ISOSORBIDE [Concomitant]
     Active Substance: ISOSORBIDE
  4. LOSARTAN POTASSIUM [Concomitant]
     Active Substance: LOSARTAN POTASSIUM
  5. OMEGA 3 [Concomitant]
     Active Substance: CAPSAICIN
  6. ATORVASTATIN [Concomitant]
     Active Substance: ATORVASTATIN
  7. BUSPIRONE [Concomitant]
     Active Substance: BUSPIRONE HYDROCHLORIDE
  8. CLOPIDOGREL [Concomitant]
     Active Substance: CLOPIDOGREL BISULFATE
  9. COENZYME Q10 [Concomitant]
     Active Substance: DIETARY SUPPLEMENT\UBIDECARENONE
  10. DEXILANT [Concomitant]
     Active Substance: DEXLANSOPRAZOLE
  11. FERROUS SULFATE [Concomitant]
     Active Substance: FERROUS SULFATE
  12. FLONASE ALLERGY RELIEF [Concomitant]
     Active Substance: FLUTICASONE PROPIONATE
  13. FLUOXETINE [Concomitant]
     Active Substance: FLUOXETINE HYDROCHLORIDE
  14. FOLATE SODIUM [Concomitant]
     Active Substance: FOLATE SODIUM
  15. GEMTESA [Concomitant]
     Active Substance: VIBEGRON
  16. LACTULOSE [Concomitant]
     Active Substance: LACTULOSE
  17. LEVOCETIRIZINE DIHYDROCHLORIDE [Concomitant]
     Active Substance: LEVOCETIRIZINE DIHYDROCHLORIDE
  18. LEVOTHYROXINE [Concomitant]
     Active Substance: LEVOTHYROXINE
  19. MONTELUKAST [Concomitant]
     Active Substance: MONTELUKAST
  20. MEMANTINE [Concomitant]
     Active Substance: MEMANTINE
  21. MECLIZINE [Concomitant]
     Active Substance: MECLIZINE HYDROCHLORIDE
  22. MAGNESIUM [Concomitant]
     Active Substance: MAGNESIUM
  23. VITAMINS NOS [Concomitant]
     Active Substance: VITAMINS
  24. NITROGLYCERIN [Concomitant]
     Active Substance: NITROGLYCERIN
  25. POTASSIUM [Concomitant]
     Active Substance: POTASSIUM
  26. PROBIOTICS NOS [Concomitant]
     Active Substance: PROBIOTICS NOS
  27. RANOLAZINE [Concomitant]
     Active Substance: RANOLAZINE
  28. SYSTANE (HYPROMELLOSE 2910 (4000 MPA.S)) [Concomitant]
     Active Substance: HYPROMELLOSE 2910 (4000 MPA.S)
  29. TORSEMIDE [Concomitant]
     Active Substance: TORSEMIDE
  30. CYANOCOBALAMIN [Concomitant]
     Active Substance: CYANOCOBALAMIN
  31. VITAMIN D3 [Concomitant]
     Active Substance: CHOLECALCIFEROL
  32. ZINC [Concomitant]
     Active Substance: ZINC

REACTIONS (2)
  - Headache [Unknown]
  - Product use in unapproved indication [Unknown]

NARRATIVE: CASE EVENT DATE: 20250901
